FAERS Safety Report 4417732-1 (Version None)
Quarter: 2004Q3

REPORT INFORMATION
  Report Type: 
  Country: None (occurrence: None)
  Receive Date: 20040803
  Receipt Date: 20040721
  Transmission Date: 20050211
  Serious: Yes (Hospitalization)
  Sender: FDA-Public Use
  Company Number: 2004042321

PATIENT
  Age: 50 Year
  Sex: Female
  Weight: 62 kg

DRUGS (7)
  1. RELPAX [Suspect]
     Indication: MIGRAINE
     Dosage: 1 IN 1 D, ORAL
     Route: 048
     Dates: start: 20040326, end: 20040101
  2. CELIPROLOL (CELIPROLOL) [Concomitant]
  3. ESTRADIOL [Concomitant]
  4. DYDROGESTERONE (DYDROGESTERONE) [Concomitant]
  5. GINKOR PROCTO (GINKGO BILOBA, HEPTAMINOL HYDROHCLORIDE, TROXERUTIN) [Concomitant]
  6. FLUVASTATIN (FLUVASTATIN) [Concomitant]
  7. CELECOXIB (CELECOXIB) [Concomitant]

REACTIONS (6)
  - APHONIA [None]
  - DYSPHAGIA [None]
  - DYSPHONIA [None]
  - HYPOAESTHESIA ORAL [None]
  - PYREXIA [None]
  - VOCAL CORD DISORDER [None]
